FAERS Safety Report 13946416 (Version 3)
Quarter: 2018Q1

REPORT INFORMATION
  Report Type: Spontaneous
  Country: US (occurrence: US)
  Receive Date: 20170907
  Receipt Date: 20180118
  Transmission Date: 20180508
  Serious: Yes (Other)
  Sender: FDA-Public Use
  Company Number: US-BAYER-2017-171215

PATIENT
  Age: 33 Year
  Sex: Female
  Weight: 74.83 kg

DRUGS (2)
  1. MIRENA [Suspect]
     Active Substance: LEVONORGESTREL
     Dosage: 20 MCG/24HR, CONT
     Route: 015
     Dates: start: 20101028, end: 20130806
  2. MIRENA [Suspect]
     Active Substance: LEVONORGESTREL

REACTIONS (7)
  - Dysmenorrhoea [None]
  - Anxiety [None]
  - Abortion missed [None]
  - Uterine perforation [None]
  - Pregnancy with contraceptive device [None]
  - Menorrhagia [None]
  - Drug ineffective [None]

NARRATIVE: CASE EVENT DATE: 201307
